FAERS Safety Report 10029779 (Version 1)
Quarter: 2014Q1

REPORT INFORMATION
  Report Type: Spontaneous
  Country: US (occurrence: None)
  Receive Date: 20140319
  Receipt Date: 20140319
  Transmission Date: 20141002
  Serious: Yes (Other)
  Sender: FDA-Public Use
  Company Number: 2014P1001830

PATIENT
  Age: 45 Year
  Sex: Male
  Weight: 108.86 kg

DRUGS (7)
  1. QC SEVERE COLD HEAD CONGESTION [Suspect]
     Indication: NASOPHARYNGITIS
     Dosage: 2 CAPLETS; X1; PO
     Dates: start: 201402, end: 201402
  2. PROZAC [Concomitant]
  3. ATENOLOL [Concomitant]
  4. SOMA [Concomitant]
  5. OXYCODONE [Concomitant]
  6. FLONASE [Concomitant]
  7. ATIVAN [Concomitant]

REACTIONS (8)
  - Local swelling [None]
  - Paraesthesia [None]
  - Pruritus generalised [None]
  - Rash [None]
  - Urticaria [None]
  - Dyspnoea [None]
  - Asphyxia [None]
  - Hypersensitivity [None]
